FAERS Safety Report 4960058-8 (Version None)
Quarter: 2006Q1

REPORT INFORMATION
  Report Type: 
  Country: None (occurrence: None)
  Receive Date: 20060331
  Receipt Date: 20051004
  Transmission Date: 20060701
  Serious: Yes (Hospitalization)
  Sender: FDA-Public Use
  Company Number: US-MERCK-0510USA03520

PATIENT
  Age: 69 Year
  Sex: Female
  Weight: 100 kg

DRUGS (2)
  1. VIOXX [Suspect]
     Indication: ARTHRALGIA
     Route: 048
     Dates: start: 20000301, end: 20011101
  2. VIOXX [Suspect]
     Indication: ARTHRITIS
     Route: 048
     Dates: start: 20000301, end: 20011101

REACTIONS (3)
  - ARTHROPATHY [None]
  - CEREBRAL THROMBOSIS [None]
  - RENAL DISORDER [None]
